FAERS Safety Report 22645024 (Version 1)
Quarter: 2023Q2

REPORT INFORMATION
  Report Type: Spontaneous
  Country: US (occurrence: US)
  Receive Date: 20230627
  Receipt Date: 20230627
  Transmission Date: 20230722
  Serious: Yes (Hospitalization)
  Sender: FDA-Public Use
  Company Number: US-002147023-NVSC2023US143424

PATIENT
  Age: 23 Month
  Sex: Female

DRUGS (3)
  1. CARVEDILOL [Suspect]
     Active Substance: CARVEDILOL
     Indication: Left ventricular dysfunction
     Dosage: UNK
     Route: 065
  2. AZACITIDINE [Concomitant]
     Active Substance: AZACITIDINE
     Indication: Acute myeloid leukaemia refractory
     Dosage: UNK, CYCLIC (4 CYCLES)
     Route: 065
  3. VENETOCLAX [Concomitant]
     Active Substance: VENETOCLAX
     Indication: Acute myeloid leukaemia refractory
     Dosage: UNK, CYCLIC (4 CYCLES)
     Route: 065

REACTIONS (3)
  - Cardiac failure [Unknown]
  - Product use issue [Unknown]
  - Product use in unapproved indication [Unknown]
